FAERS Safety Report 9246783 (Version 3)
Quarter: 2015Q2

REPORT INFORMATION
  Report Type: Spontaneous
  Country: US (occurrence: US)
  Receive Date: 20130422
  Receipt Date: 20150421
  Transmission Date: 20150821
  Serious: Yes (Other)
  Sender: FDA-Public Use
  Company Number: US-009507513-1304USA010648

PATIENT
  Sex: Male
  Weight: 112.47 kg

DRUGS (1)
  1. PROPECIA [Suspect]
     Active Substance: FINASTERIDE
     Indication: ANDROGENETIC ALOPECIA
     Dosage: 1 MG, QD
     Route: 048
     Dates: start: 19990629, end: 2003

REACTIONS (39)
  - Genital hypoaesthesia [Unknown]
  - Epididymitis [Unknown]
  - Painful ejaculation [Unknown]
  - Meniscus injury [Unknown]
  - Loss of libido [Unknown]
  - Anxiety [Unknown]
  - Groin pain [Unknown]
  - Testicular disorder [Unknown]
  - Prostatic obstruction [Unknown]
  - Electrocardiogram T wave abnormal [Unknown]
  - Epididymal enlargement [Recovering/Resolving]
  - Blood cholesterol increased [Unknown]
  - Chest pain [Unknown]
  - Depression [Unknown]
  - Benign prostatic hyperplasia [Unknown]
  - Varicocele [Unknown]
  - Metatarsalgia [Unknown]
  - Osteoarthritis [Unknown]
  - Laceration [Unknown]
  - Arthroscopic surgery [Unknown]
  - Endocrine disorder [Unknown]
  - Escherichia infection [Unknown]
  - Palpitations [Unknown]
  - Erectile dysfunction [Not Recovered/Not Resolved]
  - Testicular pain [Unknown]
  - Renal failure [Unknown]
  - Cognitive disorder [Not Recovered/Not Resolved]
  - Brain injury [Unknown]
  - Penis injury [Unknown]
  - Neuropathy peripheral [Unknown]
  - Intervertebral disc protrusion [Unknown]
  - Penile size reduced [Unknown]
  - Chest pain [Unknown]
  - Neuralgia [Unknown]
  - Sexual dysfunction [Not Recovered/Not Resolved]
  - Ejaculation disorder [Unknown]
  - Affect lability [Unknown]
  - Stress [Unknown]
  - Dizziness [Unknown]

NARRATIVE: CASE EVENT DATE: 2001
